FAERS Safety Report 7267819-3 (Version None)
Quarter: 2011Q1

REPORT INFORMATION
  Report Type: 
  Country: None (occurrence: None)
  Receive Date: 20110201
  Receipt Date: 20110121
  Transmission Date: 20110831
  Serious: Yes (Life-Threatening, Hospitalization)
  Sender: FDA-Public Use
  Company Number: B0693364A

PATIENT
  Sex: Female

DRUGS (2)
  1. LAMICTAL [Suspect]
     Indication: BIPOLAR DISORDER
     Dosage: 75MG PER DAY
     Route: 048
     Dates: start: 20101208, end: 20101224
  2. MELATONIN [Concomitant]
     Route: 048

REACTIONS (5)
  - BLISTER [None]
  - PYREXIA [None]
  - MUCOUS MEMBRANE DISORDER [None]
  - TOXIC EPIDERMAL NECROLYSIS [None]
  - URTICARIA [None]
